FAERS Safety Report 5157415-6 (Version None)
Quarter: 2006Q4

REPORT INFORMATION
  Report Type: 
  Country: None (occurrence: None)
  Receive Date: 20061127
  Receipt Date: 20061117
  Transmission Date: 20070319
  Serious: Yes (Hospitalization, Other)
  Sender: FDA-Public Use
  Company Number: 2006UW25806

PATIENT
  Age: 71 Year
  Sex: Male
  Weight: 75 kg

DRUGS (7)
  1. ZESTRIL [Suspect]
     Indication: HYPERTENSION
     Route: 048
     Dates: end: 20061112
  2. MANIVASC [Concomitant]
     Route: 048
  3. METICORTEN [Concomitant]
     Route: 048
  4. GLIMEPIL [Concomitant]
     Indication: DIABETES MELLITUS
     Route: 048
  5. GLIFAGE [Concomitant]
     Indication: DIABETES MELLITUS
     Route: 048
  6. COMBIRON [Concomitant]
     Route: 048
  7. NORVASC [Concomitant]
     Route: 048
     Dates: end: 20061112

REACTIONS (6)
  - ARRHYTHMIA [None]
  - CORONARY ARTERY BYPASS [None]
  - DIABETES MELLITUS [None]
  - MULTIPLE MYELOMA [None]
  - OEDEMA PERIPHERAL [None]
  - PERICARDITIS [None]
